FAERS Safety Report 22143153 (Version 2)
Quarter: 2023Q2

REPORT INFORMATION
  Report Type: Spontaneous
  Country: FR (occurrence: FR)
  Receive Date: 20230327
  Receipt Date: 20230404
  Transmission Date: 20230722
  Serious: Yes (Other)
  Sender: FDA-Public Use
  Company Number: FR-GSKCCFEMEA-Case-01694912_AE-68781

PATIENT

DRUGS (1)
  1. SERETIDE [Suspect]
     Active Substance: FLUTICASONE PROPIONATE\SALMETEROL XINAFOATE
     Indication: Bronchial obstruction
     Dosage: 1 PUFF(S), BID
     Dates: start: 202206

REACTIONS (9)
  - Breast cancer female [Unknown]
  - COVID-19 [Not Recovered/Not Resolved]
  - Glossitis [Unknown]
  - Dental caries [Unknown]
  - Glossodynia [Unknown]
  - Product prescribing issue [Unknown]
  - Product use in unapproved indication [Unknown]
  - Drug ineffective for unapproved indication [Unknown]
  - Wrong technique in product usage process [Unknown]
